FAERS Safety Report 9792867 (Version 1)
Quarter: 2013Q4

REPORT INFORMATION
  Report Type: Spontaneous
  Country: US (occurrence: None)
  Receive Date: 20131231
  Receipt Date: 20131231
  Transmission Date: 20140711
  Serious: Yes (Other)
  Sender: FDA-Public Use
  Company Number: None

PATIENT
  Age: 58 Year
  Sex: Female

DRUGS (1)
  1. MELOXICAN [Suspect]
     Indication: JOINT INJURY
     Route: 048
     Dates: start: 20131214, end: 20131215

REACTIONS (1)
  - Apnoea [None]
